FAERS Safety Report 9726379 (Version 3)
Quarter: 2014Q1

REPORT INFORMATION
  Report Type: Spontaneous
  Country: DE (occurrence: DE)
  Receive Date: 20131203
  Receipt Date: 20140228
  Transmission Date: 20141002
  Serious: Yes (Hospitalization)
  Sender: FDA-Public Use
  Company Number: DE-OTSUKA-EU-2013-10299

PATIENT
  Sex: Male

DRUGS (1)
  1. PLETAL [Suspect]
     Dosage: UNK, UNKNOWN
     Route: 065

REACTIONS (1)
  - Arrhythmia [Unknown]
